FAERS Safety Report 10844803 (Version 3)
Quarter: 2015Q2

REPORT INFORMATION
  Report Type: Spontaneous
  Country: US (occurrence: US)
  Receive Date: 20150220
  Receipt Date: 20150413
  Transmission Date: 20150821
  Serious: Yes (Other)
  Sender: FDA-Public Use
  Company Number: US-PURDUE-USA-2014-0118894

PATIENT
  Sex: Male

DRUGS (6)
  1. OXYCODONE HCL IR CAPSULES [Interacting]
     Active Substance: OXYCODONE HYDROCHLORIDE
     Indication: NECK PAIN
  2. OXYCODONE HCL IR CAPSULES [Interacting]
     Active Substance: OXYCODONE HYDROCHLORIDE
     Indication: BACK PAIN
  3. BUTRANS [Interacting]
     Active Substance: BUPRENORPHINE
     Indication: BACK PAIN
     Dosage: 10 MCG/HR, WEEKLY
     Route: 062
  4. OXYCODONE HCL IR CAPSULES [Interacting]
     Active Substance: OXYCODONE HYDROCHLORIDE
     Indication: ANALGESIC THERAPY
     Dosage: 10 MG, QID
     Route: 048
     Dates: start: 201411
  5. OXYCONTIN [Suspect]
     Active Substance: OXYCODONE HYDROCHLORIDE
     Indication: PAIN
     Dosage: 30 MG, Q8H
     Route: 048
     Dates: start: 20150216
  6. BUTRANS [Suspect]
     Active Substance: BUPRENORPHINE
     Indication: NECK PAIN
     Dosage: 20 MCG/HR, WEEKLY
     Route: 062
     Dates: start: 20141105

REACTIONS (16)
  - Insomnia [Unknown]
  - Migraine [Not Recovered/Not Resolved]
  - Nausea [Unknown]
  - Suicidal ideation [Unknown]
  - Oedema [Unknown]
  - Depression [Unknown]
  - Negative thoughts [Unknown]
  - Inhibitory drug interaction [Unknown]
  - Application site discolouration [Not Recovered/Not Resolved]
  - Limb discomfort [Unknown]
  - Drug effect delayed [Unknown]
  - Drug effect decreased [Unknown]
  - Intentional product use issue [Unknown]
  - Cervical spinal stenosis [Unknown]
  - Inadequate analgesia [Not Recovered/Not Resolved]
  - Feeling abnormal [Unknown]

NARRATIVE: CASE EVENT DATE: 201411
